FAERS Safety Report 7842142-4 (Version None)
Quarter: 2011Q4

REPORT INFORMATION
  Report Type: 
  Country: None (occurrence: None)
  Receive Date: 20111025
  Receipt Date: 20111024
  Transmission Date: 20120403
  Serious: Yes (Hospitalization)
  Sender: FDA-Public Use
  Company Number: FR-TEVA-303805ISR

PATIENT
  Age: 10 Year
  Sex: Male

DRUGS (1)
  1. TOPIRAMATE [Suspect]
     Dosage: 700 MILLIGRAM;

REACTIONS (2)
  - OVERDOSE [None]
  - ENCEPHALOPATHY [None]
